FAERS Safety Report 12777722 (Version 1)
Quarter: 2016Q3

REPORT INFORMATION
  Report Type: Spontaneous
  Country: US (occurrence: US)
  Receive Date: 20160924
  Receipt Date: 20160924
  Transmission Date: 20161109
  Serious: No
  Sender: FDA-Public Use
  Company Number: US-SHIRE-US201612926

PATIENT
  Age: 6 Year
  Sex: Male

DRUGS (4)
  1. VYVANSE [Suspect]
     Active Substance: LISDEXAMFETAMINE DIMESYLATE
     Indication: ATTENTION DEFICIT/HYPERACTIVITY DISORDER
     Dosage: 20 MG, 1X/DAY:QD
     Route: 048
     Dates: start: 201508
  2. VYVANSE [Suspect]
     Active Substance: LISDEXAMFETAMINE DIMESYLATE
     Dosage: 30 MG, 1X/DAY:QD
     Route: 048
     Dates: start: 201609
  3. VYVANSE [Suspect]
     Active Substance: LISDEXAMFETAMINE DIMESYLATE
     Dosage: 30 MG, 1X/DAY:QD; REPORTED STARTED DURING SCHOOL YEAR OF 2015 AND STOPPED AFTER SCHOOL ENDED
     Route: 048
     Dates: start: 2015
  4. VYVANSE [Suspect]
     Active Substance: LISDEXAMFETAMINE DIMESYLATE
     Dosage: 20 MG, 1X/DAY:QD
     Route: 048
     Dates: start: 201608, end: 201609

REACTIONS (7)
  - Incorrect dose administered [Unknown]
  - Wrong technique in product usage process [Unknown]
  - Feeling jittery [Unknown]
  - Educational problem [Unknown]
  - Disturbance in attention [Unknown]
  - Depressed mood [Unknown]
  - Irritability [Unknown]

NARRATIVE: CASE EVENT DATE: 2015
